FAERS Safety Report 15196780 (Version 1)
Quarter: 2018Q3

REPORT INFORMATION
  Report Type: Spontaneous
  Country: US (occurrence: US)
  Receive Date: 20180725
  Receipt Date: 20180725
  Transmission Date: 20181010
  Serious: Yes (Other)
  Sender: FDA-Public Use
  Company Number: US-BAYER-2018-136195

PATIENT
  Age: 49 Year
  Sex: Male

DRUGS (1)
  1. BETASERON [Suspect]
     Active Substance: INTERFERON BETA-1B
     Dosage: 0.3 MG, UNK
     Dates: start: 20170718, end: 20180717

REACTIONS (4)
  - Injection site abscess [None]
  - Injection site swelling [None]
  - Multiple sclerosis [Recovering/Resolving]
  - Injection site erythema [None]

NARRATIVE: CASE EVENT DATE: 20180529
